FAERS Safety Report 15099103 (Version 1)
Quarter: 2018Q2

REPORT INFORMATION
  Report Type: Spontaneous
  Country: US (occurrence: US)
  Receive Date: 20180611
  Receipt Date: 20180611
  Transmission Date: 20180711
  Serious: Yes (Hospitalization)
  Sender: FDA-Public Use
  Company Number: None

PATIENT
  Age: 34 Year
  Sex: Male

DRUGS (1)
  1. VANCOMYCIN [Suspect]
     Active Substance: VANCOMYCIN
     Indication: INFECTION
     Dates: start: 20180127, end: 20180130

REACTIONS (4)
  - Red man syndrome [None]
  - Pyrexia [None]
  - Erythema [None]
  - Vomiting [None]

NARRATIVE: CASE EVENT DATE: 20180130
